FAERS Safety Report 19959387 (Version 1)
Quarter: 2021Q4

REPORT INFORMATION
  Report Type: Spontaneous
  Country: US (occurrence: US)
  Receive Date: 20211014
  Receipt Date: 20211014
  Transmission Date: 20220303
  Serious: No
  Sender: FDA-Public Use
  Company Number: None

PATIENT
  Age: 34 Year
  Sex: Male
  Weight: 74.25 kg

DRUGS (5)
  1. DEXTROAMPHETAMINE [Suspect]
     Active Substance: DEXTROAMPHETAMINE
     Indication: Attention deficit hyperactivity disorder
     Dosage: ?          QUANTITY:1 1/2 TABLET;
     Route: 048
     Dates: start: 20211007
  2. ADDERALL [Concomitant]
     Active Substance: AMPHETAMINE ASPARTATE\AMPHETAMINE SULFATE\DEXTROAMPHETAMINE SACCHARATE\DEXTROAMPHETAMINE SULFATE
  3. TRUVADA [Concomitant]
     Active Substance: EMTRICITABINE\TENOFOVIR DISOPROXIL FUMARATE
  4. XANAX [Concomitant]
     Active Substance: ALPRAZOLAM
  5. PEPCID [Concomitant]
     Active Substance: FAMOTIDINE

REACTIONS (10)
  - Attention deficit hyperactivity disorder [None]
  - Quality of life decreased [None]
  - Restlessness [None]
  - Vision blurred [None]
  - Nervousness [None]
  - Agitation [None]
  - Drug ineffective [None]
  - Condition aggravated [None]
  - Feeling abnormal [None]
  - Product substitution issue [None]

NARRATIVE: CASE EVENT DATE: 20211007
